FAERS Safety Report 13784959 (Version 1)
Quarter: 2017Q3

REPORT INFORMATION
  Report Type: Spontaneous
  Country: US (occurrence: US)
  Receive Date: 20170725
  Receipt Date: 20170725
  Transmission Date: 20171127
  Serious: No
  Sender: FDA-Public Use
  Company Number: US-BAYER-2017-137409

PATIENT
  Age: 17 Year
  Sex: Female
  Weight: 57 kg

DRUGS (3)
  1. ACARBOSE. [Suspect]
     Active Substance: ACARBOSE
     Indication: HYPOGLYCAEMIA
     Dosage: UNK
  2. CORN STARCH [Concomitant]
     Active Substance: STARCH, CORN
     Dosage: UNK
  3. OCTREOTIDE. [Concomitant]
     Active Substance: OCTREOTIDE
     Dosage: 1-2 MCG/KG/DAY

REACTIONS (3)
  - Product use in unapproved indication [None]
  - Off label use [None]
  - Drug administered to patient of inappropriate age [None]
